FAERS Safety Report 9822507 (Version 1)
Quarter: 2014Q1

REPORT INFORMATION
  Report Type: Spontaneous
  Country: US (occurrence: US)
  Receive Date: 20140116
  Receipt Date: 20140116
  Transmission Date: 20141002
  Serious: Yes (Other)
  Sender: FDA-Public Use
  Company Number: US-SUN PHARMACEUTICAL INDUSTRIES LTD-2014SUN00028

PATIENT
  Age: 72 Year
  Sex: Female

DRUGS (1)
  1. BACTRIM TABLETS, USP 400 MG/ 80 MG [Suspect]
     Indication: PRODUCT USED FOR UNKNOWN INDICATION
     Route: 065

REACTIONS (2)
  - Toxic shock syndrome [Unknown]
  - Drug hypersensitivity [Unknown]
